FAERS Safety Report 9448109 (Version 1)
Quarter: 2013Q3

REPORT INFORMATION
  Report Type: Spontaneous
  Country: US (occurrence: US)
  Receive Date: 20130808
  Receipt Date: 20130808
  Transmission Date: 20140515
  Serious: No
  Sender: FDA-Public Use
  Company Number: US-BAYER-2013-095916

PATIENT
  Sex: Female

DRUGS (2)
  1. ALEVE CAPLET [Suspect]
     Indication: LIGAMENT SPRAIN
     Dosage: 2 DF, UNK
     Route: 048
  2. ALEVE CAPLET [Suspect]
     Indication: LIGAMENT SPRAIN
     Dosage: 2 DF, TID

REACTIONS (2)
  - Drug ineffective [None]
  - Extra dose administered [None]
